FAERS Safety Report 5519399-8 (Version None)
Quarter: 2007Q4

REPORT INFORMATION
  Report Type: 
  Country: None (occurrence: None)
  Receive Date: 20071116
  Receipt Date: 20071112
  Transmission Date: 20080405
  Serious: Yes (Hospitalization)
  Sender: FDA-Public Use
  Company Number: TW-BRISTOL-MYERS SQUIBB COMPANY-13979786

PATIENT
  Age: 83 Year
  Sex: Male

DRUGS (8)
  1. WARFARIN SODIUM [Suspect]
     Dosage: IN APR-2006 DOSAGE TAKEN WAS 2.5MG DAILY;IN JUN-2006 DOSE DECREASED TO 1.25 MG/DAY.
     Dates: start: 19980301
  2. POLIGLUSAM [Interacting]
     Dosage: STOPPED IN SEP-2006, REINITIATED IN OCT-2006 AND DISCONTINUED LATER.
     Dates: start: 20060301
  3. CARVEDILOL [Concomitant]
  4. FUROSEMIDE [Concomitant]
  5. INDAPAMIDE [Concomitant]
  6. IRBESARTAN [Concomitant]
  7. GLICLAZIDE [Concomitant]
  8. DIGOXIN [Concomitant]

REACTIONS (2)
  - DRUG INTERACTION [None]
  - INTERNATIONAL NORMALISED RATIO INCREASED [None]
